FAERS Safety Report 9144816 (Version 3)
Quarter: 2013Q2

REPORT INFORMATION
  Report Type: Spontaneous
  Country: US (occurrence: US)
  Receive Date: 20130307
  Receipt Date: 20130508
  Transmission Date: 20140414
  Serious: No
  Sender: FDA-Public Use
  Company Number: US-009507513-1303USA000732

PATIENT
  Age: 23 Year
  Sex: Female
  Weight: 63.39 kg

DRUGS (1)
  1. IMPLANON [Suspect]
     Indication: CONTRACEPTION
     Dosage: RIGHT ARM
     Route: 059
     Dates: start: 20110601

REACTIONS (7)
  - Device breakage [Not Recovered/Not Resolved]
  - Vaginal haemorrhage [Not Recovered/Not Resolved]
  - Device difficult to use [Not Recovered/Not Resolved]
  - Implant site inflammation [Unknown]
  - Dysfunctional uterine bleeding [Not Recovered/Not Resolved]
  - Medical device complication [Not Recovered/Not Resolved]
  - Implant site fibrosis [Not Recovered/Not Resolved]
